FAERS Safety Report 10936018 (Version 2)
Quarter: 2015Q1

REPORT INFORMATION
  Report Type: Spontaneous
  Country: US (occurrence: US)
  Receive Date: 20150320
  Receipt Date: 20150323
  Transmission Date: 20150721
  Serious: No
  Sender: FDA-Public Use
  Company Number: US-ABBVIE-15P-163-1356897-00

PATIENT
  Age: 36 Year
  Sex: Female
  Weight: 61.29 kg

DRUGS (2)
  1. VIEKIRA PAK [Suspect]
     Active Substance: DASABUVIR\OMBITASVIR\PARITAPREVIR\RITONAVIR
     Indication: HEPATITIS C
     Route: 048
     Dates: start: 201502
  2. MODERIBA [Suspect]
     Active Substance: RIBAVIRIN
     Indication: PRODUCT USED FOR UNKNOWN INDICATION
     Route: 048
     Dates: start: 201502, end: 201502

REACTIONS (5)
  - Anxiety [Recovered/Resolved]
  - Insomnia [Recovered/Resolved]
  - Toothache [Recovering/Resolving]
  - Dizziness [Recovered/Resolved]
  - Gingivitis [Unknown]

NARRATIVE: CASE EVENT DATE: 201502
